FAERS Safety Report 7358524-3 (Version None)
Quarter: 2011Q1

REPORT INFORMATION
  Report Type: 
  Country: None (occurrence: None)
  Receive Date: 20110317
  Receipt Date: 20110309
  Transmission Date: 20110831
  Serious: Yes (Other)
  Sender: FDA-Public Use
  Company Number: GB-TEVA-270207ISR

PATIENT
  Age: 77 Year
  Sex: Female

DRUGS (4)
  1. OXCARBAZEPINE [Suspect]
     Indication: EPILEPSY
  2. OXCARBAZEPINE [Interacting]
  3. OXCARBAZEPINE [Interacting]
  4. LACOSAMIDE [Interacting]
     Indication: EPILEPSY

REACTIONS (3)
  - DRUG INTERACTION [None]
  - NEUROTOXICITY [None]
  - DIPLOPIA [None]
